FAERS Safety Report 11877896 (Version 3)
Quarter: 2016Q1

REPORT INFORMATION
  Report Type: Spontaneous
  Country: US (occurrence: US)
  Receive Date: 20151230
  Receipt Date: 20160111
  Transmission Date: 20160526
  Serious: No
  Sender: FDA-Public Use
  Company Number: US-HORIZON-ACT-0231-2015

PATIENT
  Sex: Male

DRUGS (2)
  1. ACTIMMUNE [Suspect]
     Active Substance: INTERFERON GAMMA-1B
     Indication: PRODUCT USED FOR UNKNOWN INDICATION
     Dosage: 45.5 ?G TWICE WEEKLY
     Dates: start: 201110
  2. ZYRTEC [Concomitant]
     Active Substance: CETIRIZINE HYDROCHLORIDE
     Indication: HYPERSENSITIVITY

REACTIONS (7)
  - Enzyme level increased [Recovered/Resolved]
  - Blood iron decreased [Recovered/Resolved]
  - Sluggishness [Recovered/Resolved]
  - Off label use [Not Recovered/Not Resolved]
  - Headache [Recovered/Resolved]
  - Cough [Recovered/Resolved]
  - Wheezing [Recovered/Resolved]
